FAERS Safety Report 23641271 (Version 1)
Quarter: 2024Q1

REPORT INFORMATION
  Report Type: Other
  Country: US (occurrence: None)
  Receive Date: 20240318
  Receipt Date: 20240318
  Transmission Date: 20240410
  Serious: Yes (Death)
  Sender: FDA-Public Use
  Company Number: US-ROCHE-3288699

PATIENT
  Age: 66 Year
  Sex: Female
  Weight: 74.456 kg

DRUGS (8)
  1. ENSPRYNG [Suspect]
     Active Substance: SATRALIZUMAB-MWGE
     Indication: Product used for unknown indication
     Dosage: TREATMENT DATES: NOV/2022 AND DEC/2022
     Route: 065
  2. ACTEMRA [Suspect]
     Active Substance: TOCILIZUMAB
     Indication: Neuromyelitis optica spectrum disorder
     Dosage: ANTICIPATED DATE OF TREATMENT: 10/APR/2023
     Route: 042
  3. ACTEMRA [Suspect]
     Active Substance: TOCILIZUMAB
     Indication: Demyelination
  4. OXYCODONE [Concomitant]
     Active Substance: OXYCODONE\OXYCODONE HYDROCHLORIDE
  5. PREDNISONE [Concomitant]
     Active Substance: PREDNISONE
  6. ELIQUIS [Concomitant]
     Active Substance: APIXABAN
  7. VOLTAREN [Concomitant]
     Active Substance: DICLOFENAC SODIUM
  8. PROTONIX [Concomitant]
     Active Substance: PANTOPRAZOLE SODIUM

REACTIONS (4)
  - Drug hypersensitivity [Unknown]
  - Off label use [Unknown]
  - Urticaria [Unknown]
  - Death [Fatal]

NARRATIVE: CASE EVENT DATE: 20230525
